FAERS Safety Report 16349980 (Version 2)
Quarter: 2019Q2

REPORT INFORMATION
  Report Type: Spontaneous
  Country: US (occurrence: US)
  Receive Date: 20190523
  Receipt Date: 20190603
  Transmission Date: 20190711
  Serious: No
  Sender: FDA-Public Use
  Company Number: US-MATRIXX INITIATIVES, INC.-2067392

PATIENT
  Age: 50 Year
  Sex: Female
  Weight: 61.36 kg

DRUGS (1)
  1. ZICAM COLD REMEDY NASAL SPRAY [Suspect]
     Active Substance: HOMEOPATHICS
     Indication: NASOPHARYNGITIS
     Route: 045
     Dates: start: 20190209

REACTIONS (4)
  - Anosmia [None]
  - Dyspepsia [None]
  - Weight decreased [None]
  - Dysgeusia [None]
